FAERS Safety Report 12111618 (Version 2)
Quarter: 2019Q2

REPORT INFORMATION
  Report Type: Spontaneous
  Country: FI (occurrence: FI)
  Receive Date: 20160224
  Receipt Date: 20190621
  Transmission Date: 20190711
  Serious: Yes (Hospitalization, Other)
  Sender: FDA-Public Use
  Company Number: FI-INDIVIOR LIMITED-INDV-088265-2016

PATIENT
  Sex: Male

DRUGS (3)
  1. BUPRENORPHINE. [Suspect]
     Active Substance: BUPRENORPHINE
     Indication: PRODUCT USED FOR UNKNOWN INDICATION
     Dosage: UNK
     Route: 042
  2. PREGABALIN. [Suspect]
     Active Substance: PREGABALIN
     Indication: PRODUCT USED FOR UNKNOWN INDICATION
     Dosage: UNK
     Route: 065
  3. BENZODIAZEPINE DERIVATIVES [Suspect]
     Active Substance: BENZODIAZEPINE
     Indication: PRODUCT USED FOR UNKNOWN INDICATION
     Dosage: UNK
     Route: 065

REACTIONS (8)
  - Quadriparesis [Unknown]
  - Loss of consciousness [Recovered/Resolved]
  - Rhabdomyolysis [Unknown]
  - Compartment syndrome [Unknown]
  - Intentional product use issue [Unknown]
  - Toxicity to various agents [Unknown]
  - Myelopathy [Unknown]
  - Substance abuse [Unknown]
